FAERS Safety Report 9015183 (Version 1)
Quarter: 2013Q1

REPORT INFORMATION
  Report Type: Spontaneous
  Country: US (occurrence: None)
  Receive Date: 20130109
  Receipt Date: 20130109
  Transmission Date: 20140127
  Serious: Yes (Disabling)
  Sender: FDA-Public Use
  Company Number: None

PATIENT
  Age: 54 Year
  Sex: Female
  Weight: 68.04 kg

DRUGS (1)
  1. RECLAST [Suspect]
     Indication: OSTEOPOROSIS
     Dosage: INFUSION ONCE/YEAR
     Route: 041
     Dates: start: 20120625, end: 20120625

REACTIONS (4)
  - Bone pain [None]
  - Back pain [None]
  - Pain [None]
  - No therapeutic response [None]
